FAERS Safety Report 8405331 (Version 3)
Quarter: 2012Q4

REPORT INFORMATION
  Report Type: 
  Country: US (occurrence: US)
  Receive Date: 20120214
  Receipt Date: 20120828
  Transmission Date: 20130627
  Serious: Yes (Other)
  Sender: FDA-Public Use
  Company Number: US-JNJFOC-20120204933

PATIENT
  Age: 25 Year
  Sex: Female

DRUGS (5)
  1. REMICADE [Suspect]
     Indication: COLITIS ULCERATIVE
     Route: 042
     Dates: end: 201202
  2. REMICADE [Suspect]
     Indication: COLITIS ULCERATIVE
     Dosage: Start date was ^about 2 years ago^
     Route: 042
  3. REMICADE [Suspect]
     Indication: COLITIS ULCERATIVE
     Route: 042
  4. AZATHIOPRINE [Suspect]
     Indication: COLITIS ULCERATIVE
     Route: 048
     Dates: end: 201202
  5. AZATHIOPRINE [Suspect]
     Indication: COLITIS ULCERATIVE
     Dosage: duration ^about 3 years^
     Route: 048

REACTIONS (1)
  - Renal cell carcinoma [Unknown]
